FAERS Safety Report 8797999 (Version 4)
Quarter: 2013Q1

REPORT INFORMATION
  Report Type: Spontaneous
  Country: IT (occurrence: IT)
  Receive Date: 20120919
  Receipt Date: 20130131
  Transmission Date: 20140127
  Serious: Yes (Other)
  Sender: FDA-Public Use
  Company Number: IT-BRISTOL-MYERS SQUIBB COMPANY-16786584

PATIENT
  Age: 8 Decade
  Sex: 0

DRUGS (1)
  1. ABATACEPT [Suspect]
     Indication: RHEUMATOID ARTHRITIS
     Dosage: T0,T14,T28,2ND,19MAR11,2012,NO OF INF:7
     Dates: start: 20111102

REACTIONS (5)
  - Cataract [Unknown]
  - Intervertebral disc protrusion [Unknown]
  - Fatigue [Unknown]
  - Fall [Unknown]
  - Spinal column injury [Unknown]
